FAERS Safety Report 8247082-7 (Version None)
Quarter: 2012Q1

REPORT INFORMATION
  Report Type: 
  Country: None (occurrence: None)
  Receive Date: 20120330
  Receipt Date: 20120326
  Transmission Date: 20120608
  Serious: Yes (Death, Other)
  Sender: FDA-Public Use
  Company Number: FR-JNJFOC-20120313857

PATIENT

DRUGS (4)
  1. DACARBAZINE [Suspect]
     Indication: HODGKIN'S DISEASE
     Route: 065
  2. VINBLASTINE SULFATE [Suspect]
     Indication: HODGKIN'S DISEASE
     Route: 065
  3. DOXORUBICIN HCL [Suspect]
     Indication: HODGKIN'S DISEASE
     Route: 042
  4. BLEOMYCIN SULFATE [Suspect]
     Indication: HODGKIN'S DISEASE
     Route: 065

REACTIONS (3)
  - ACUTE MYELOID LEUKAEMIA [None]
  - DEATH [None]
  - MYELODYSPLASTIC SYNDROME [None]
